FAERS Safety Report 16191681 (Version 1)
Quarter: 2019Q2

REPORT INFORMATION
  Report Type: Spontaneous
  Country: NZ (occurrence: NZ)
  Receive Date: 20190412
  Receipt Date: 20190412
  Transmission Date: 20190711
  Serious: Yes (Other)
  Sender: FDA-Public Use
  Company Number: NZ-BAYER-2019-074126

PATIENT
  Age: 77 Year
  Sex: Male

DRUGS (1)
  1. ACETYLSALICYLIC ACID (CARDIO) [Suspect]
     Active Substance: ASPIRIN
     Indication: MYOCARDIAL ISCHAEMIA
     Dosage: UNK

REACTIONS (4)
  - Haemorrhagic cyst [Recovered/Resolved]
  - Peroneal nerve palsy [Recovered/Resolved]
  - Injury [Recovered/Resolved]
  - Nerve compression [Recovered/Resolved]
